FAERS Safety Report 17981098 (Version 2)
Quarter: 2020Q4

REPORT INFORMATION
  Report Type: Spontaneous
  Country: JP (occurrence: JP)
  Receive Date: 20200705
  Receipt Date: 20201015
  Transmission Date: 20210113
  Serious: Yes (Hospitalization)
  Sender: FDA-Public Use
  Company Number: JP-AMGEN-JPNSP2020106057

PATIENT
  Age: 76 Year
  Sex: Female
  Weight: 61.2 kg

DRUGS (29)
  1. MAXACALCITOL [Concomitant]
     Active Substance: MAXACALCITOL
     Dosage: 5 MUG, Q56H
     Route: 042
     Dates: start: 20190524, end: 20191007
  2. FESIN [SACCHARATED IRON OXIDE] [Concomitant]
     Active Substance: IRON SUCROSE
     Dosage: 40 MILLIGRAM, QWK
     Route: 042
     Dates: start: 20191220, end: 20200221
  3. DARBEPOETIN ALFA [Concomitant]
     Active Substance: DARBEPOETIN ALFA
     Dosage: 40 MICROGRAM, QWK
     Route: 065
     Dates: start: 20200218, end: 20200415
  4. NESP [Concomitant]
     Active Substance: DARBEPOETIN ALFA
     Dosage: 20 MICROGRAM
     Route: 065
     Dates: start: 20190821, end: 20200115
  5. INSULIN ABBOTT [Concomitant]
     Dosage: UNK
     Route: 065
  6. NESP [Concomitant]
     Active Substance: DARBEPOETIN ALFA
     Dosage: 40 MILLIGRAM, QWK
     Route: 065
     Dates: start: 20200218, end: 20200415
  7. NESP [Concomitant]
     Active Substance: DARBEPOETIN ALFA
     Dosage: 30 MICROGRAM
     Route: 065
     Dates: start: 20200122, end: 20200212
  8. MAXACALCITOL [Concomitant]
     Active Substance: MAXACALCITOL
     Dosage: 2.5 MUG, Q56H
     Route: 042
     Dates: start: 20191009
  9. HEPARIN C [Concomitant]
     Dosage: UNK
     Route: 065
  10. P-TOL [SUCROFERRIC OXYHYDROXIDE] [Concomitant]
     Active Substance: SUCROFERRIC OXYHYDROXIDE
     Dosage: 750 MILLIGRAM, QD
     Route: 048
     Dates: start: 20190508, end: 20190513
  11. CALTAN [Concomitant]
     Active Substance: CALCIUM CARBONATE
     Dosage: 750 MILLIGRAM, QD
     Route: 048
     Dates: start: 20190619, end: 20190908
  12. NESP [Concomitant]
     Active Substance: DARBEPOETIN ALFA
     Dosage: 40 MICROGRAM
     Route: 065
     Dates: start: 20200218, end: 20200415
  13. NESP [Concomitant]
     Active Substance: DARBEPOETIN ALFA
     Dosage: 50 MICROGRAM
     Route: 065
     Dates: start: 20200422
  14. FESIN [SACCHARATED IRON OXIDE] [Concomitant]
     Active Substance: IRON SUCROSE
     Dosage: 40 MILLIGRAM, QWK
     Route: 042
     Dates: start: 20190809, end: 20191011
  15. FESIN [SACCHARATED IRON OXIDE] [Concomitant]
     Active Substance: IRON SUCROSE
     Dosage: 40 MILLIGRAM, QWK
     Route: 042
     Dates: start: 20200320, end: 20200522
  16. FESIN [SACCHARATED IRON OXIDE] [Concomitant]
     Active Substance: IRON SUCROSE
     Dosage: 40 MILLIGRAM, QWK
     Route: 042
     Dates: start: 20200612
  17. DARBEPOETIN ALFA [Concomitant]
     Active Substance: DARBEPOETIN ALFA
     Dosage: 50 MICROGRAM, QWK
     Route: 065
     Dates: start: 20200422
  18. NESP [Concomitant]
     Active Substance: DARBEPOETIN ALFA
     Dosage: 50 MILLIGRAM, QWK
     Route: 065
     Dates: start: 20200422
  19. NESP [Concomitant]
     Active Substance: DARBEPOETIN ALFA
     Dosage: 10 MUG, QW
     Route: 065
     Dates: end: 20190814
  20. NESP [Concomitant]
     Active Substance: DARBEPOETIN ALFA
     Dosage: 20 MICROGRAM, QWK
     Route: 065
     Dates: start: 20190821, end: 20200115
  21. MAXACALCITOL [Concomitant]
     Active Substance: MAXACALCITOL
     Dosage: 2.5 MUG, Q56H
     Route: 042
     Dates: start: 20180910, end: 20190522
  22. FESIN [SACCHARATED IRON OXIDE] [Concomitant]
     Active Substance: IRON SUCROSE
     Dosage: 40 MILLIGRAM, QWK
     Route: 042
     Dates: start: 20190405, end: 20190412
  23. FESIN [SACCHARATED IRON OXIDE] [Concomitant]
     Active Substance: IRON SUCROSE
     Dosage: 40 MILLIGRAM, QWK
     Route: 042
     Dates: start: 20190426, end: 20190607
  24. CALTAN [Concomitant]
     Active Substance: CALCIUM CARBONATE
     Dosage: 500 MILLIGRAM, QD
     Route: 048
     Dates: start: 20190909, end: 20200122
  25. NESP [Concomitant]
     Active Substance: DARBEPOETIN ALFA
     Dosage: 30 MICROGRAM, QWK
     Route: 065
     Dates: start: 20190821, end: 20200115
  26. PARSABIV [Suspect]
     Active Substance: ETELCALCETIDE HYDROCHLORIDE
     Indication: HYPERPARATHYROIDISM SECONDARY
     Dosage: 5 MG, Q56H
     Route: 010
     Dates: start: 20190410
  27. FESIN [SACCHARATED IRON OXIDE] [Concomitant]
     Active Substance: IRON SUCROSE
     Dosage: 40 MILLIGRAM, QWK
     Route: 042
     Dates: end: 20190125
  28. DARBEPOETIN ALFA [Concomitant]
     Active Substance: DARBEPOETIN ALFA
     Dosage: 20 MICROGRAM, QWK
     Route: 065
     Dates: start: 20190821, end: 20200115
  29. DARBEPOETIN ALFA [Concomitant]
     Active Substance: DARBEPOETIN ALFA
     Dosage: 30 MICROGRAM, QWK
     Route: 065
     Dates: start: 20200122, end: 20200212

REACTIONS (1)
  - Chest discomfort [Recovered/Resolved]

NARRATIVE: CASE EVENT DATE: 20190915
